FAERS Safety Report 12599583 (Version 1)
Quarter: 2016Q3

REPORT INFORMATION
  Report Type: Spontaneous
  Country: CO (occurrence: CO)
  Receive Date: 20160727
  Receipt Date: 20160727
  Transmission Date: 20161109
  Serious: Yes (Hospitalization)
  Sender: FDA-Public Use
  Company Number: CO-ELI_LILLY_AND_COMPANY-CO201605000931

PATIENT
  Age: 65 Year
  Sex: Male

DRUGS (2)
  1. HUMALOG [Suspect]
     Active Substance: INSULIN LISPRO
     Indication: DIABETES MELLITUS
     Dosage: UNK, TID
     Route: 058
     Dates: start: 2001
  2. LANTUS [Concomitant]
     Active Substance: INSULIN GLARGINE

REACTIONS (7)
  - Adrenal disorder [Not Recovered/Not Resolved]
  - Prothrombin level abnormal [Not Recovered/Not Resolved]
  - Blood glucose fluctuation [Not Recovered/Not Resolved]
  - Depressed mood [Not Recovered/Not Resolved]
  - Intracardiac thrombus [Not Recovered/Not Resolved]
  - Fatigue [Not Recovered/Not Resolved]
  - Back pain [Not Recovered/Not Resolved]

NARRATIVE: CASE EVENT DATE: 2001
